FAERS Safety Report 16981305 (Version 1)
Quarter: 2019Q4

REPORT INFORMATION
  Report Type: Spontaneous
  Country: CA (occurrence: CA)
  Receive Date: 20191031
  Receipt Date: 20191031
  Transmission Date: 20200122
  Serious: Yes (Hospitalization)
  Sender: FDA-Public Use
  Company Number: CA-PFIZER INC-2019469655

PATIENT
  Age: 34 Year
  Sex: Male

DRUGS (2)
  1. MORPHINE SULFATE. [Suspect]
     Active Substance: MORPHINE SULFATE
     Indication: PAIN
     Dosage: UNK
  2. PREDNISONE. [Concomitant]
     Active Substance: PREDNISONE
     Indication: COLITIS ULCERATIVE
     Dosage: 40 MG, DAILY (TAPERING)
     Route: 065

REACTIONS (6)
  - Colitis ulcerative [Unknown]
  - Asthenia [Unknown]
  - Muscle spasms [Unknown]
  - Weight decreased [Unknown]
  - Lethargy [Unknown]
  - Insomnia [Unknown]

NARRATIVE: CASE EVENT DATE: 201910
